FAERS Safety Report 6066998-3 (Version None)
Quarter: 2009Q1

REPORT INFORMATION
  Report Type: 
  Country: None (occurrence: None)
  Receive Date: 20090205
  Receipt Date: 20090130
  Transmission Date: 20090719
  Serious: Yes (Hospitalization)
  Sender: FDA-Public Use
  Company Number: FR-JNJFOC-20090104147

PATIENT
  Sex: Male

DRUGS (8)
  1. REMINYL [Suspect]
     Indication: DEMENTIA ALZHEIMER'S TYPE
     Route: 048
  2. NOVOLOG MIX 70/30 [Concomitant]
     Indication: TYPE 2 DIABETES MELLITUS
     Route: 058
  3. LEVOTHYROX [Concomitant]
     Indication: DRUG USE FOR UNKNOWN INDICATION
     Route: 048
  4. MEPRONIZINE [Concomitant]
     Indication: INSOMNIA
     Route: 048
  5. PRAZEPAM [Concomitant]
     Indication: DRUG USE FOR UNKNOWN INDICATION
     Route: 048
  6. PREVISCAN [Concomitant]
     Indication: THROMBOSIS PROPHYLAXIS
  7. SPASFON [Concomitant]
     Indication: TYPE 2 DIABETES MELLITUS
     Route: 048
  8. STAGID [Concomitant]
     Indication: TYPE 2 DIABETES MELLITUS
     Route: 048

REACTIONS (3)
  - BRADYCARDIA [None]
  - PNEUMONIA ASPIRATION [None]
  - SYNCOPE [None]
